FAERS Safety Report 6399652-9 (Version None)
Quarter: 2009Q4

REPORT INFORMATION
  Report Type: 
  Country: None (occurrence: None)
  Receive Date: 20091009
  Receipt Date: 20091009
  Transmission Date: 20100525
  Serious: Yes (Life-Threatening)
  Sender: FDA-Public Use
  Company Number: None

PATIENT
  Sex: Female

DRUGS (1)
  1. TRUE TEST EPICUTANEOUS PATCH TEST [Suspect]
     Indication: DERMATITIS CONTACT
     Dosage: SINGLE USE CUTANEOUS 003
     Route: 003
     Dates: start: 20090408

REACTIONS (1)
  - ANAPHYLACTIC REACTION [None]
